FAERS Safety Report 16961218 (Version 1)
Quarter: 2019Q4

REPORT INFORMATION
  Report Type: Spontaneous
  Country: US (occurrence: US)
  Receive Date: 20190906
  Receipt Date: 20190906
  Transmission Date: 20200122
  Serious: Yes (Other)
  Sender: FDA-Public Use
  Company Number: None

PATIENT
  Age: 76 Year
  Sex: Female
  Weight: 61.23 kg

DRUGS (8)
  1. HYDROCHLOROTHIAZIDE. [Concomitant]
     Active Substance: HYDROCHLOROTHIAZIDE
  2. MOBIC [Concomitant]
     Active Substance: MELOXICAM
  3. PREVACID [Concomitant]
     Active Substance: LANSOPRAZOLE
  4. FISH OIL [Concomitant]
     Active Substance: FISH OIL
  5. CHOLESTYRAMINE FOR ORAL SUSPENSION POWDER [Suspect]
     Active Substance: CHOLESTYRAMINE
     Indication: BLOOD CHOLESTEROL INCREASED
     Dosage: ?          QUANTITY:4.9 G GRAM(S);?
     Route: 048
     Dates: start: 20190630, end: 20190702
  6. FIBER BLEND [Concomitant]
  7. CALCIUM +D [Concomitant]
     Active Substance: CALCIUM\VITAMIN D
  8. MULTIVITAMINS [Concomitant]
     Active Substance: VITAMINS

REACTIONS (4)
  - Product taste abnormal [None]
  - Nausea [None]
  - Headache [None]
  - Abdominal discomfort [None]

NARRATIVE: CASE EVENT DATE: 20190630
